FAERS Safety Report 16418421 (Version 5)
Quarter: 2023Q4

REPORT INFORMATION
  Report Type: Report from Study
  Country: US (occurrence: US)
  Receive Date: 20190612
  Receipt Date: 20231109
  Transmission Date: 20240109
  Serious: Yes (Other)
  Sender: FDA-Public Use
  Company Number: None

PATIENT
  Sex: Female
  Weight: 56.7 kg

DRUGS (6)
  1. JANUVIA [Suspect]
     Active Substance: SITAGLIPTIN PHOSPHATE
     Dosage: 100 MG, ONCE DAILY IN AM
     Route: 048
     Dates: start: 2014
  2. FOLIC ACID [Concomitant]
     Active Substance: FOLIC ACID
     Dosage: 1 DOSAGE FORM, QD, 1333 MCG DFE FOLIC ACID 800 MCG
     Route: 048
  3. CYANOCOBALAMIN [Concomitant]
     Active Substance: CYANOCOBALAMIN
     Indication: Supportive care
     Dosage: 500 MICROGRAM, QD
     Route: 048
  4. IRON [Concomitant]
     Active Substance: IRON
     Dosage: UNK
  5. BIOTIN [Concomitant]
     Active Substance: BIOTIN
     Indication: Trichorrhexis
     Dosage: 2500 MICROGRAM PER SERVING/FIRST WEEK WAS TAKING 2 A DAY THEN CUT IT DOWN TO 1 A DAY BECAUSE OF AFFO
  6. BIOTIN [Concomitant]
     Active Substance: BIOTIN
     Indication: Alopecia

REACTIONS (7)
  - Rheumatoid arthritis [Unknown]
  - Neuropathy peripheral [Unknown]
  - Fibromyalgia [Unknown]
  - Confusional state [Unknown]
  - Speech disorder [Unknown]
  - Blood glucose fluctuation [Unknown]
  - Product label issue [Unknown]
